FAERS Safety Report 19424737 (Version 1)
Quarter: 2021Q2

REPORT INFORMATION
  Report Type: Other
  Country: GB (occurrence: GB)
  Receive Date: 20210617
  Receipt Date: 20210617
  Transmission Date: 20210717
  Serious: Yes (Death, Other)
  Sender: FDA-Public Use
  Company Number: GB-CELLTRION INC.-2021GB008101

PATIENT

DRUGS (65)
  1. TRASTUZUMAB (UNKNOWN) [Suspect]
     Active Substance: TRASTUZUMAB
     Dosage: 588 MG EVERY 3 WEEKS (DOSE FORM: 230)  (CUMUALTIVE DOSE: 1792.0 MG)
     Route: 042
     Dates: start: 20190118
  2. LETROZOLE. [Suspect]
     Active Substance: LETROZOLE
     Indication: BREAST CANCER METASTATIC
     Dosage: 2.5 MG, EVERY 1 DAY
     Route: 048
     Dates: start: 20171128
  3. PERTUZUMAB. [Suspect]
     Active Substance: PERTUZUMAB
     Dosage: 420 MG EVERY 3 WEEKS (DOSAGE FORM: 230)  (CUMULATIVE DOSE: 1280 MG)
     Route: 042
     Dates: start: 20190118, end: 20190711
  4. PERTUZUMAB. [Suspect]
     Active Substance: PERTUZUMAB
     Dosage: 420 MG EVERY 3 WEEKS (DOSAGE FORM: 230)  (CUMULATIVE DOSE: 1280 MG)
     Route: 042
     Dates: start: 20190118, end: 20190711
  5. TRASTUZUMAB (UNKNOWN) [Suspect]
     Active Substance: TRASTUZUMAB
     Indication: BREAST CANCER METASTATIC
     Dosage: 882 MG EVERY 3 WEEKS (DOSAGE FORM: 230)
     Route: 042
     Dates: start: 20180116, end: 20180116
  6. TRASTUZUMAB (UNKNOWN) [Suspect]
     Active Substance: TRASTUZUMAB
     Dosage: 882 MG EVERY 3 WEEKS (DOSAGE FORM: 230)
     Route: 042
     Dates: start: 20180116, end: 20180116
  7. CAPECITABINE. [Suspect]
     Active Substance: CAPECITABINE
     Dosage: 1800 MG, ONCE IN 2 WEEKS
     Route: 048
  8. CLOTRIMAZOLE. [Concomitant]
     Active Substance: CLOTRIMAZOLE
     Dosage: 2 %, EVERY 1 DAY (DOSAGE FORM: 17)
     Route: 061
     Dates: start: 202002
  9. DEXAMETHASONE. [Concomitant]
     Active Substance: DEXAMETHASONE
     Indication: METASTASES TO CENTRAL NERVOUS SYSTEM
     Dosage: 16 MG, EVERY 1 DAY (DOSAGE FORM: 245)
     Route: 048
     Dates: start: 201812, end: 201812
  10. ENOXAPARIN [Concomitant]
     Active Substance: ENOXAPARIN
     Dosage: 80 MG EVERY 1 DAY
     Route: 058
     Dates: start: 202002
  11. MIDAZOLAM. [Concomitant]
     Active Substance: MIDAZOLAM
     Dosage: 30 MG
     Route: 058
     Dates: start: 2020
  12. POTASSIUM CHLORIDE. [Concomitant]
     Active Substance: POTASSIUM CHLORIDE
     Indication: HYPOKALAEMIA
     Dosage: 1 EVERY 1 DAY
     Route: 042
     Dates: start: 20190329, end: 20190401
  13. TRASTUZUMAB (UNKNOWN) [Suspect]
     Active Substance: TRASTUZUMAB
     Dosage: 588 MG EVERY 3 WEEKS (DOSE FORM: 230)  (CUMUALTIVE DOSE: 1792.0 MG)
     Route: 042
     Dates: start: 20190118
  14. PERTUZUMAB. [Suspect]
     Active Substance: PERTUZUMAB
     Dosage: 840 MG EVERY 3 WEEKS (DOSAGE FORM: 230) (CUMULATIVE DOSE: 17240 MG)
     Route: 042
     Dates: start: 20180116, end: 20180116
  15. ASPIRIN. [Concomitant]
     Active Substance: ASPIRIN
     Dosage: 75 MG EVERY 1 DAY (DOSAGE FORM: 245)
     Route: 048
     Dates: start: 2019, end: 2019
  16. ATROVENT [Concomitant]
     Active Substance: IPRATROPIUM BROMIDE
     Indication: DYSPNOEA
     Dosage: 0.5 MG, EVERY 1 DAY
     Route: 055
     Dates: start: 20200224, end: 20200224
  17. DEXAMETHASONE. [Concomitant]
     Active Substance: DEXAMETHASONE
     Dosage: 12 MG, EVERY 1 DAY (DOSAGE FORM: 245)
     Route: 048
     Dates: start: 20190119
  18. DEXAMETHASONE. [Concomitant]
     Active Substance: DEXAMETHASONE
     Dosage: 16 MG, EVERY 1 DAY (DOSAGE FORM: 245)
     Route: 048
     Dates: start: 202005
  19. FOLIC ACID. [Concomitant]
     Active Substance: FOLIC ACID
     Dosage: 5 MG, EVERY 1 DAY (DOSAGE FORM: 245)
     Route: 048
     Dates: start: 20160211
  20. HYDROCORTISONE. [Concomitant]
     Active Substance: HYDROCORTISONE
     Dosage: 0.5 %, AS NECESSARY (DOSAGE FORM: 17)
     Route: 061
     Dates: start: 20191025, end: 2019
  21. LACOSAMIDE. [Concomitant]
     Active Substance: LACOSAMIDE
     Dosage: 200 MG, EVERY 1 DAY (DOSAGE: 245)
     Route: 048
     Dates: start: 20200519
  22. MIDAZOLAM. [Concomitant]
     Active Substance: MIDAZOLAM
     Dosage: 10 MG, AS NECESSARY
     Route: 065
     Dates: start: 2020
  23. PLASMA?LYTE 148 [Concomitant]
     Active Substance: MAGNESIUM CHLORIDE\POTASSIUM CHLORIDE\SODIUM ACETATE\SODIUM CHLORIDE\SODIUM GLUCONATE
     Indication: DYSPNOEA
     Dosage: 2000 MG, EVERY 1 DAY
     Route: 042
     Dates: start: 20200224, end: 20200224
  24. SALBUTAMOL [Concomitant]
     Active Substance: ALBUTEROL
     Indication: DYSPNOEA
     Dosage: 10 MG, EVERY 1 DAY
     Route: 055
     Dates: start: 20200224, end: 20200225
  25. SIMVASTATIN. [Concomitant]
     Active Substance: SIMVASTATIN
     Dosage: 20 MG, EVERY 1 DAY (DOSAGE FORM: 245)
     Route: 048
     Dates: start: 2019
  26. PERTUZUMAB. [Suspect]
     Active Substance: PERTUZUMAB
     Dosage: 420 MG EVERY 3 WEEKS (DOSAGE FORM: 230)
     Route: 042
     Dates: start: 20180503, end: 20181115
  27. MIDAZOLAM. [Concomitant]
     Active Substance: MIDAZOLAM
     Dosage: 2.5 MG, EVERY 2 DAYS (DOSAGE FORM: 9)
     Route: 058
  28. MORPHINE SULPHATE [Concomitant]
     Active Substance: MORPHINE SULFATE
     Dosage: 2.5 MG, AS NECESSARY
     Route: 058
     Dates: start: 20190330
  29. NIFEDIPINE. [Concomitant]
     Active Substance: NIFEDIPINE
     Dosage: 60 MG, EVERY 1 DAY (DOSAGE FORM: 5)
     Route: 048
     Dates: start: 2018
  30. NITROFURANTOIN. [Concomitant]
     Active Substance: NITROFURANTOIN
     Dosage: 200 MG, EVERY 1 DAY (DOSAGE FORM: 245)
     Route: 048
     Dates: start: 20190403, end: 20190405
  31. ONDANSETRON [Concomitant]
     Active Substance: ONDANSETRON
     Dosage: 12 MG, EVERY 1 DAY (DOSAGE FORM: 245)
     Route: 048
     Dates: start: 2019
  32. TRASTUZUMAB (UNKNOWN) [Suspect]
     Active Substance: TRASTUZUMAB
     Dosage: 588 MG EVERY 3 WEEKS (DOSE FORM: 230)  (CUMUALTIVE DOSE: 9073.167 MG)
     Route: 041
     Dates: start: 20180503, end: 20181115
  33. TRASTUZUMAB (UNKNOWN) [Suspect]
     Active Substance: TRASTUZUMAB
     Dosage: 588 MG EVERY 3 WEEKS (DOSE FORM: 230) (CUMUALTIVE DOSE: 1792.0 MG)
     Route: 042
     Dates: start: 20190118
  34. CEPHALEXIN. [Concomitant]
     Active Substance: CEPHALEXIN
     Indication: URINARY TRACT INFECTION
     Dosage: UNK
     Route: 048
     Dates: start: 20190208, end: 2019
  35. COCODAMOL [Concomitant]
     Active Substance: ACETAMINOPHEN\CODEINE PHOSPHATE
     Dosage: 30 MG, AS NECESSARY (DOSAGE FORM: 245)
     Route: 048
     Dates: start: 20200512
  36. DEXAMETHASONE. [Concomitant]
     Active Substance: DEXAMETHASONE
     Dosage: 16 MG, EVERY 1 DAY (DOSAGE FORM: 245)
     Route: 048
     Dates: start: 20190417, end: 20190424
  37. GLYCOPYRRONIUM BROMIDE [Concomitant]
     Active Substance: GLYCOPYRROLATE
     Dosage: 400 UG, AS NECESSARY
     Route: 058
     Dates: start: 20190330
  38. LACOSAMIDE. [Concomitant]
     Active Substance: LACOSAMIDE
     Dosage: 100 MG, EVERY 1 DAY (DOSAGE FORM: 245) (CUMULATIVE DOSE: 41595.832 MG)
     Route: 048
     Dates: start: 20200512, end: 20200519
  39. SERTRALINE [Concomitant]
     Active Substance: SERTRALINE HYDROCHLORIDE
     Dosage: 50 MG, EVERY 1 DAY (DOSAGE FORM: 245)
     Route: 048
  40. TRASTUZUMAB (UNKNOWN) [Suspect]
     Active Substance: TRASTUZUMAB
     Dosage: 588 MG EVERY 3 WEEKS (DOSE FORM: 230) (CUMUALTIVE DOSE: 9073.167 MG)
     Route: 041
     Dates: start: 20180503, end: 20181115
  41. TRASTUZUMAB (UNKNOWN) [Suspect]
     Active Substance: TRASTUZUMAB
     Dosage: 588 MG EVERY 3 WEEKS (DOSE FORM: 230)  (CUMUALTIVE DOSE: 9073.167 MG)
     Route: 041
     Dates: start: 20180503, end: 20181115
  42. CYCLIZINE [Concomitant]
     Active Substance: CYCLIZINE
     Dosage: 150 MG, EVERY 1 DAY (DOSAGE FORM: 245 DAYS)
     Route: 048
     Dates: start: 2019, end: 20190403
  43. DEXAMETHASONE. [Concomitant]
     Active Substance: DEXAMETHASONE
     Dosage: 2 MG, EVERY 1 DAY (DOSAGE FORM: 245) (CUMULATIVE DOSE: 65.916664)
     Route: 048
     Dates: start: 20190425, end: 2019
  44. LEVETIRACETAM. [Concomitant]
     Active Substance: LEVETIRACETAM
     Indication: SEIZURE
     Dosage: 3000 MG, EVERY 1 DAY (DOSAGE FORM: 245)
     Route: 048
  45. PARACETAMOL [Concomitant]
     Active Substance: ACETAMINOPHEN
     Dosage: 500 MG, AS NECESSARY (DOSAGE FORM: 245)
     Route: 048
  46. TAZOCIN [Concomitant]
     Active Substance: PIPERACILLIN SODIUM\TAZOBACTAM SODIUM
     Indication: DYSPNOEA
     Dosage: 4.5 G, EVERY 1 DAY
     Route: 042
     Dates: start: 20200224, end: 20200224
  47. VANCOMYCIN [Concomitant]
     Active Substance: VANCOMYCIN
     Dosage: 500 MG, EVERY 1 DAY (DOSAGE FORM: 5)
     Route: 048
     Dates: start: 20200302, end: 20200316
  48. PERTUZUMAB. [Suspect]
     Active Substance: PERTUZUMAB
     Indication: BREAST CANCER METASTATIC
     Dosage: 840 MG EVERY 3 WEEKS (DOSAGE FORM: 230) (CUMULATIVE DOSE: 17240 MG)
     Route: 042
     Dates: start: 20180116, end: 20180116
  49. PERTUZUMAB. [Suspect]
     Active Substance: PERTUZUMAB
     Dosage: 420 MG EVERY 3 WEEKS (DOSAGE FORM: 230)
     Route: 042
     Dates: start: 20180503, end: 20181115
  50. CAPECITABINE. [Suspect]
     Active Substance: CAPECITABINE
     Indication: BREAST CANCER METASTATIC
     Dosage: 1800 MG, TWICE DAILY
     Route: 048
     Dates: start: 20191011
  51. AMOXICILLIN. [Concomitant]
     Active Substance: AMOXICILLIN
     Indication: URINARY TRACT INFECTION
     Dosage: 1500 MG EVERY 1 DAY
     Route: 042
     Dates: start: 20190330, end: 20190401
  52. DEXAMETHASONE. [Concomitant]
     Active Substance: DEXAMETHASONE
     Dosage: 8 MG, EVERY 1 DAY (DOSAGE FORM: 245) (CUMULATIVE DOSE: 576 MG)
     Route: 048
     Dates: start: 20190110, end: 2019
  53. NYSTATIN. [Concomitant]
     Active Substance: NYSTATIN
     Dosage: 4 MG, 1 EVERY 1 DAY
     Route: 048
     Dates: start: 20200505, end: 20200511
  54. ROSUVASTATIN. [Concomitant]
     Active Substance: ROSUVASTATIN
     Dosage: 5 MG, EVERY 1 DAY (DOSAGE FORM: 245)
     Route: 048
     Dates: start: 2019
  55. TRASTUZUMAB (UNKNOWN) [Suspect]
     Active Substance: TRASTUZUMAB
     Dosage: 882 MG EVERY 3 WEEKS (DOSAGE FORM: 230)
     Route: 042
     Dates: start: 20180116, end: 20180116
  56. PERTUZUMAB. [Suspect]
     Active Substance: PERTUZUMAB
     Dosage: 840 MG EVERY 3 WEEKS (DOSAGE FORM: 230) (CUMULATIVE DOSE: 17240 MG)
     Route: 042
     Dates: start: 20180116, end: 20180116
  57. PERTUZUMAB. [Suspect]
     Active Substance: PERTUZUMAB
     Dosage: 420 MG EVERY 3 WEEKS (DOSAGE FORM: 230)
     Route: 042
     Dates: start: 20180503, end: 20181115
  58. PERTUZUMAB. [Suspect]
     Active Substance: PERTUZUMAB
     Dosage: 420 MG EVERY 3 WEEKS (DOSAGE FORM: 230) (CUMULATIVE DOSE: 1280 MG)
     Route: 042
     Dates: start: 20190118, end: 20190711
  59. CAPECITABINE. [Suspect]
     Active Substance: CAPECITABINE
     Dosage: 1800 MG, TWICE A DAY
     Route: 048
     Dates: start: 20191204, end: 20200214
  60. DENOSUMAB [Concomitant]
     Active Substance: DENOSUMAB
     Dosage: 120 MG
     Route: 058
     Dates: start: 20180503, end: 20200214
  61. LANSOPRAZOLE. [Concomitant]
     Active Substance: LANSOPRAZOLE
     Indication: METASTASES TO CENTRAL NERVOUS SYSTEM
     Dosage: 30 MG, EVERY 1 DAY (DOSAGE FORM: 5)
     Route: 048
     Dates: start: 201812
  62. METRONIDAZOLE. [Concomitant]
     Active Substance: METRONIDAZOLE
     Indication: DIARRHOEA
     Dosage: 1200 MG, EVERY 1 DAY (DOSAGE FORM: 245)
     Route: 048
     Dates: start: 20190401, end: 20190403
  63. METFORMIN [Concomitant]
     Active Substance: METFORMIN HYDROCHLORIDE
     Dosage: 500 MG, EVERY 1 DAY (DOSAGE FORM: 245)
     Route: 065
     Dates: start: 2018
  64. NORMAL SALINE [Concomitant]
     Active Substance: SODIUM CHLORIDE
     Indication: HYPOKALAEMIA
     Dosage: 1 EVERY 1 DAY
     Route: 042
     Dates: start: 20190329, end: 20190401
  65. PROCHLORPERAZINE. [Concomitant]
     Active Substance: PROCHLORPERAZINE
     Dosage: 6 MG, EVERY 1 DAY (DOSAGE FORM: 245)
     Route: 065
     Dates: start: 2020

REACTIONS (2)
  - Disease progression [Fatal]
  - Vomiting [Recovered/Resolved]

NARRATIVE: CASE EVENT DATE: 20190323
